FAERS Safety Report 5944219-7 (Version None)
Quarter: 2008Q4

REPORT INFORMATION
  Report Type: 
  Country: None (occurrence: None)
  Receive Date: 20081021
  Receipt Date: 20071130
  Transmission Date: 20090506
  Serious: Yes (Other)
  Sender: FDA-Public Use
  Company Number: HQWYE258805NOV04

PATIENT
  Age: 56 Year
  Sex: Female

DRUGS (5)
  1. PREMARIN [Suspect]
     Dosage: 1.25MG DAILY, ORAL
     Route: 048
     Dates: start: 19830101, end: 19980901
  2. ESTROGENS (ESTROGENS, ) [Suspect]
  3. MEDROXYPROGESTERONE [Suspect]
     Indication: MENOPAUSE
     Dosage: 5MG, ORAL
     Route: 048
     Dates: start: 19830101, end: 19980901
  4. PREMPRO [Suspect]
  5. PROVERA [Suspect]
     Indication: MENOPAUSE
     Dosage: 5 MG 1X PER 1 DAY, ORAL
     Route: 048
     Dates: start: 19830101, end: 19980901

REACTIONS (1)
  - BREAST CANCER [None]
